FAERS Safety Report 24581233 (Version 2)
Quarter: 2024Q4

REPORT INFORMATION
  Report Type: Spontaneous
  Country: DE (occurrence: DE)
  Receive Date: 20241105
  Receipt Date: 20241129
  Transmission Date: 20250115
  Serious: Yes (Other)
  Sender: GLAXOSMITHKLINE
  Company Number: DE-GSKCCFEMEA-Case-02102087_AE-89658

PATIENT

DRUGS (4)
  1. LAMICTAL [Suspect]
     Active Substance: LAMOTRIGINE
     Indication: Product used for unknown indication
     Dosage: 125 MG
  2. LISDEXAMFETAMINE DIMESYLATE [Suspect]
     Active Substance: LISDEXAMFETAMINE DIMESYLATE
     Indication: Product used for unknown indication
     Dosage: UNK
  3. ATOMOXETINE HYDROCHLORIDE [Suspect]
     Active Substance: ATOMOXETINE HYDROCHLORIDE
     Indication: Product used for unknown indication
     Dosage: UNK
  4. IRON [Concomitant]
     Active Substance: IRON
     Indication: Product used for unknown indication
     Dosage: UNK 40 DROPS

REACTIONS (7)
  - Epilepsy [Unknown]
  - Autism spectrum disorder [Unknown]
  - Electroencephalogram abnormal [Unknown]
  - Attention deficit hyperactivity disorder [Unknown]
  - Wrong technique in product usage process [Unknown]
  - Product preparation issue [Unknown]
  - Extra dose administered [Unknown]
